FAERS Safety Report 24054895 (Version 1)
Quarter: 2024Q3

REPORT INFORMATION
  Report Type: Spontaneous
  Country: US (occurrence: US)
  Receive Date: 20240705
  Receipt Date: 20240705
  Transmission Date: 20241017
  Serious: Yes (Other)
  Sender: BAYER
  Company Number: US-BAYER-2024A092858

PATIENT
  Age: 49 Year
  Sex: Female

DRUGS (1)
  1. ADEMPAS [Suspect]
     Active Substance: RIOCIGUAT
     Indication: Pulmonary arterial hypertension
     Dosage: 2 MG, TID
     Route: 048
     Dates: start: 20211214

REACTIONS (8)
  - Urinary tract infection [None]
  - Nephrolithiasis [None]
  - Aortic dissection [None]
  - Aneurysm [None]
  - Diverticulitis [None]
  - Intestinal obstruction [None]
  - Back pain [None]
  - Pain [None]

NARRATIVE: CASE EVENT DATE: 20240625
